FAERS Safety Report 25598308 (Version 2)
Quarter: 2025Q3

REPORT INFORMATION
  Report Type: Spontaneous
  Country: US (occurrence: US)
  Receive Date: 20250723
  Receipt Date: 20250728
  Transmission Date: 20251021
  Serious: No
  Sender: BIOMARIN
  Company Number: US-BIOMARINAP-US-2025-167340

PATIENT
  Age: 12 Year
  Sex: Female

DRUGS (1)
  1. KUVAN [Suspect]
     Active Substance: SAPROPTERIN DIHYDROCHLORIDE
     Indication: Product used for unknown indication
     Dosage: UNK, QD

REACTIONS (4)
  - Aggression [Recovered/Resolved]
  - Fatigue [Recovered/Resolved]
  - Amino acid level increased [Recovered/Resolved]
  - Drug ineffective [Unknown]
